FAERS Safety Report 20817009 (Version 2)
Quarter: 2022Q2

REPORT INFORMATION
  Report Type: Spontaneous
  Country: TR (occurrence: TR)
  Receive Date: 20220512
  Receipt Date: 20220531
  Transmission Date: 20220720
  Serious: Yes (Hospitalization)
  Sender: FDA-Public Use
  Company Number: TR-ORGANON-O2205TUR000516

PATIENT
  Age: 17 Year
  Sex: Male

DRUGS (4)
  1. GONADOTROPIN, CHORIONIC [Suspect]
     Active Substance: CHORIOGONADOTROPIN ALFA
     Indication: Adverse event
     Dosage: 5000 IU WEEKLY
  2. MIRTAZAPINE [Suspect]
     Active Substance: MIRTAZAPINE
     Indication: Major depression
     Dosage: 30 MG/DAY
     Route: 048
  3. RISPERIDONE [Suspect]
     Active Substance: RISPERIDONE
     Indication: Major depression
     Dosage: 2 MG/DAY
  4. MIDAZOLAM [Suspect]
     Active Substance: MIDAZOLAM
     Indication: Major depression
     Dosage: 15 MG/ DAY

REACTIONS (4)
  - Catatonia [Recovering/Resolving]
  - Psychotic disorder [Recovering/Resolving]
  - Therapeutic product effect incomplete [Unknown]
  - Product use in unapproved indication [Unknown]
